FAERS Safety Report 17560172 (Version 1)
Quarter: 2020Q1

REPORT INFORMATION
  Report Type: Spontaneous
  Country: IT (occurrence: IT)
  Receive Date: 20200319
  Receipt Date: 20200319
  Transmission Date: 20200409
  Serious: Yes (Hospitalization)
  Sender: FDA-Public Use
  Company Number: NVSC2020IT072447

PATIENT
  Age: 52 Year
  Sex: Female

DRUGS (4)
  1. ABILIFY [Suspect]
     Active Substance: ARIPIPRAZOLE
     Indication: INTENTIONAL SELF-INJURY
     Route: 065
     Dates: start: 20191202, end: 20191202
  2. EUTIROX [Concomitant]
     Active Substance: LEVOTHYROXINE SODIUM
     Indication: HYPOTHYROIDISM
     Dosage: 50 MICROGRAMMI COMPRESSE
     Route: 048
     Dates: start: 20030101, end: 20191202
  3. ENTUMIN [Suspect]
     Active Substance: CLOTHIAPINE
     Indication: INTENTIONAL SELF-INJURY
     Dosage: GOCCE ORALI, SOLUZIONE, 1/12 MILLILITRE
     Route: 065
     Dates: start: 20191202, end: 20191202
  4. QUETIAPIN ^SANDOZ^ [Suspect]
     Active Substance: QUETIAPINE
     Indication: INTENTIONAL SELF-INJURY
     Route: 065
     Dates: start: 20191202, end: 20191202

REACTIONS (2)
  - Drug abuse [Unknown]
  - Anxiety [Unknown]

NARRATIVE: CASE EVENT DATE: 20191202
